FAERS Safety Report 7807924-3 (Version None)
Quarter: 2011Q4

REPORT INFORMATION
  Report Type: 
  Country: None (occurrence: None)
  Receive Date: 20111011
  Receipt Date: 20111011
  Transmission Date: 20120403
  Serious: Yes (Other)
  Sender: FDA-Public Use
  Company Number: None

PATIENT
  Age: 50 Year
  Sex: Male
  Weight: 88.45 kg

DRUGS (1)
  1. CHANTIX [Suspect]
     Indication: SMOKING CESSATION THERAPY
     Dosage: 1 TABLET
     Route: 048
     Dates: start: 20111004, end: 20111006

REACTIONS (4)
  - INSOMNIA [None]
  - ANXIETY [None]
  - ABNORMAL DREAMS [None]
  - DEPRESSION [None]
